FAERS Safety Report 16400660 (Version 1)
Quarter: 2019Q2

REPORT INFORMATION
  Report Type: Report from Study
  Country: US (occurrence: US)
  Receive Date: 20190606
  Receipt Date: 20190606
  Transmission Date: 20190711
  Serious: Yes (Hospitalization, Other)
  Sender: FDA-Public Use
  Company Number: US-ACTELION-A-NJ2019-191040

PATIENT
  Age: 65 Year
  Sex: Female

DRUGS (1)
  1. TRACLEER [Suspect]
     Active Substance: BOSENTAN
     Indication: PULMONARY ARTERIAL HYPERTENSION
     Dosage: 125 MG
     Route: 048
     Dates: start: 20161118, end: 201905

REACTIONS (18)
  - Aspartate aminotransferase increased [Unknown]
  - Treatment noncompliance [Unknown]
  - Tachypnoea [Unknown]
  - Diarrhoea [Unknown]
  - Blood bilirubin increased [Unknown]
  - Blood albumin increased [Unknown]
  - Acute kidney injury [Unknown]
  - Ischaemia [Unknown]
  - Blood creatinine increased [Unknown]
  - Hypotension [Unknown]
  - Liver injury [Unknown]
  - Cardiogenic shock [Unknown]
  - Tachycardia [Unknown]
  - Sepsis [Unknown]
  - Alanine aminotransferase increased [Unknown]
  - Blood lactate dehydrogenase increased [Unknown]
  - International normalised ratio increased [Unknown]
  - Blood urea increased [Unknown]

NARRATIVE: CASE EVENT DATE: 20190516
